FAERS Safety Report 22860238 (Version 4)
Quarter: 2023Q4

REPORT INFORMATION
  Report Type: Report from Study
  Country: KR (occurrence: KR)
  Receive Date: 20230824
  Receipt Date: 20231012
  Transmission Date: 20240110
  Serious: Yes (Hospitalization)
  Sender: FDA-Public Use
  Company Number: KR-002147023-NVSC2023KR180305

PATIENT
  Age: 76 Year
  Sex: Male
  Weight: 67 kg

DRUGS (15)
  1. TAFINLAR [Suspect]
     Active Substance: DABRAFENIB MESYLATE
     Indication: Anaplastic thyroid cancer
     Dosage: 300 MG
     Route: 048
     Dates: start: 20200407, end: 20230808
  2. TAFINLAR [Suspect]
     Active Substance: DABRAFENIB MESYLATE
     Indication: BRAF gene mutation
     Dosage: 300 MG
     Route: 048
     Dates: start: 20200407, end: 20230914
  3. TAFINLAR [Suspect]
     Active Substance: DABRAFENIB MESYLATE
     Dosage: 300 MG
     Route: 065
     Dates: start: 20230922
  4. MEKINIST [Suspect]
     Active Substance: TRAMETINIB DIMETHYL SULFOXIDE
     Indication: Anaplastic thyroid cancer
     Dosage: 2 MG
     Route: 048
     Dates: start: 20200407, end: 20230808
  5. MEKINIST [Suspect]
     Active Substance: TRAMETINIB DIMETHYL SULFOXIDE
     Indication: BRAF gene mutation
     Dosage: 2 MG
     Route: 048
     Dates: start: 20200407, end: 20230914
  6. MEKINIST [Suspect]
     Active Substance: TRAMETINIB DIMETHYL SULFOXIDE
     Dosage: 2 MG
     Route: 065
     Dates: start: 20230922
  7. SERENZAL [Concomitant]
     Indication: Pruritus
     Dosage: 5 MG
     Route: 065
     Dates: start: 20210611, end: 20230809
  8. SERENZAL [Concomitant]
     Dosage: 5 MG, PRN
     Route: 048
     Dates: start: 20210611
  9. LANSOPRAZOLE [Concomitant]
     Active Substance: LANSOPRAZOLE
     Indication: Gastritis
     Dosage: 15 MG (LFDT)
     Route: 065
     Dates: start: 20200129, end: 20230809
  10. LANSOPRAZOLE [Concomitant]
     Active Substance: LANSOPRAZOLE
     Dosage: 15 MG, PRN
     Route: 048
     Dates: start: 20200129
  11. SYNTHROID [Concomitant]
     Active Substance: LEVOTHYROXINE SODIUM
     Indication: Thyroid cancer
     Dosage: 0.15 MG
     Route: 065
     Dates: start: 20181206, end: 20230809
  12. SYNTHROID [Concomitant]
     Active Substance: LEVOTHYROXINE SODIUM
     Dosage: 0.15 MG, QD
     Route: 048
     Dates: start: 20181206
  13. GEMIGLIPTIN\METFORMIN [Concomitant]
     Active Substance: GEMIGLIPTIN\METFORMIN
     Indication: Diabetes mellitus
     Dosage: 50/500 MG (SR)
     Route: 065
     Dates: start: 20230426, end: 20230809
  14. GEMIGLIPTIN\METFORMIN [Concomitant]
     Active Substance: GEMIGLIPTIN\METFORMIN
     Dosage: 50/500 MG, QD
     Route: 048
     Dates: start: 20230426
  15. SULFAMETHOXAZOLE\TRIMETHOPRIM [Concomitant]
     Active Substance: SULFAMETHOXAZOLE\TRIMETHOPRIM
     Indication: Prophylaxis
     Dosage: UNK (400/80 MG)
     Route: 065
     Dates: start: 20230914, end: 20230914

REACTIONS (5)
  - Rhabdomyolysis [Recovered/Resolved]
  - Asthenia [Recovered/Resolved]
  - Urinary tract infection [Recovered/Resolved]
  - Pyrexia [Unknown]
  - Urinary tract discomfort [Unknown]

NARRATIVE: CASE EVENT DATE: 20230809
